FAERS Safety Report 15563376 (Version 13)
Quarter: 2019Q4

REPORT INFORMATION
  Report Type: Report from Study
  Country: US (occurrence: US)
  Receive Date: 20181029
  Receipt Date: 20191226
  Transmission Date: 20200122
  Serious: Yes (Death, Hospitalization, Other)
  Sender: FDA-Public Use
  Company Number: US-ACTELION-A-US2018-180651

PATIENT
  Age: 62 Year
  Sex: Female
  Weight: 58.96 kg

DRUGS (8)
  1. NITRO [Concomitant]
     Active Substance: NITROGLYCERIN
     Dosage: UNK, BID
     Route: 061
  2. VELETRI [Suspect]
     Active Substance: EPOPROSTENOL
     Dosage: 45 NG/KG, PER MIN
     Route: 042
  3. VELETRI [Suspect]
     Active Substance: EPOPROSTENOL
     Dosage: 50 NG/KG, PER MIN
     Route: 042
  4. LETAIRIS [Concomitant]
     Active Substance: AMBRISENTAN
  5. VELETRI [Suspect]
     Active Substance: EPOPROSTENOL
     Dosage: 22 NG/KG, PER MIN
     Route: 042
  6. TADALAFIL. [Suspect]
     Active Substance: TADALAFIL
     Indication: PRODUCT USED FOR UNKNOWN INDICATION
     Dosage: UNK
     Route: 065
     Dates: end: 201811
  7. VELETRI [Suspect]
     Active Substance: EPOPROSTENOL
     Indication: PULMONARY HYPERTENSION
     Dosage: 38 NG/KG, PER MIN
     Route: 042
  8. VELETRI [Suspect]
     Active Substance: EPOPROSTENOL
     Dosage: 20 NG/KG, PER MIN
     Route: 042

REACTIONS (14)
  - Fluid retention [Unknown]
  - Headache [Unknown]
  - Pulmonary hypertension [Unknown]
  - Constipation [Unknown]
  - Death [Fatal]
  - Device alarm issue [Not Recovered/Not Resolved]
  - Dyspnoea [Unknown]
  - Upper limb fracture [Recovered/Resolved]
  - Rash [Unknown]
  - Diarrhoea [Unknown]
  - Hospitalisation [Unknown]
  - Finger amputation [Unknown]
  - Malaise [Unknown]
  - Nausea [Unknown]

NARRATIVE: CASE EVENT DATE: 20181016
